FAERS Safety Report 9212527 (Version 3)
Quarter: 2013Q3

REPORT INFORMATION
  Report Type: Spontaneous
  Country: US (occurrence: US)
  Receive Date: 20130405
  Receipt Date: 20130902
  Transmission Date: 20140515
  Serious: No
  Sender: FDA-Public Use
  Company Number: US-009507513-1304USA001716

PATIENT
  Sex: Male

DRUGS (6)
  1. VICTRELIS [Suspect]
     Indication: HEPATITIS C
     Dosage: 200 MG, 4 PILLS, TID
     Route: 048
     Dates: start: 20121221, end: 20130715
  2. PEGINTRON [Suspect]
     Indication: HEPATITIS C
     Dosage: 120 MICROGRAM, QW
     Route: 058
     Dates: start: 20121203, end: 20130715
  3. RIBAPAK [Suspect]
     Indication: HEPATITIS C
     Dosage: 600/600
     Dates: end: 20130715
  4. ZOLPIDEM TARTRATE [Concomitant]
  5. VENLAFAXINE HYDROCHLORIDE [Concomitant]
  6. ATORVASTATIN CALCIUM [Concomitant]

REACTIONS (10)
  - Heart rate increased [Recovered/Resolved]
  - Rash generalised [Recovered/Resolved]
  - Nausea [Recovered/Resolved]
  - Fatigue [Recovered/Resolved]
  - Dyspnoea [Recovered/Resolved]
  - Red blood cell count decreased [Recovered/Resolved]
  - White blood cell count decreased [Recovered/Resolved]
  - Decreased appetite [Recovered/Resolved]
  - Accidental exposure to product [Unknown]
  - Product quality issue [Unknown]
